FAERS Safety Report 15854544 (Version 2)
Quarter: 2019Q1

REPORT INFORMATION
  Report Type: Spontaneous
  Country: US (occurrence: US)
  Receive Date: 20190122
  Receipt Date: 20190124
  Transmission Date: 20190417
  Serious: Yes (Other)
  Sender: FDA-Public Use
  Company Number: US-PFIZER INC-2019024919

PATIENT
  Age: 42 Year
  Sex: Male

DRUGS (12)
  1. CISPLATIN. [Suspect]
     Active Substance: CISPLATIN
     Indication: METASTASES TO LUNG
     Dosage: UNK (DOSE ADJUSTMENT)
  2. VINBLASTINE [Suspect]
     Active Substance: VINBLASTINE
     Indication: PROSTATE CANCER
     Dosage: 1.5 MG/M2, CYCLIC (1.5 MG/M2 X 4 DOSES)
     Dates: start: 2009
  3. INTERLEUKIN-2 [Suspect]
     Active Substance: ALDESLEUKIN
     Indication: METASTASES TO LUNG
     Dosage: UNK (5X10^6 UNITS/M^2 X 4 DOSES)
  4. DACARBAZINE. [Suspect]
     Active Substance: DACARBAZINE
     Indication: PROSTATE CANCER
     Dosage: 800 MG/M2, CYCLIC (800 MG/M^2 X 1 DOSE)
     Dates: start: 2009
  5. DACARBAZINE. [Suspect]
     Active Substance: DACARBAZINE
     Indication: METASTASES TO LUNG
     Dosage: UNK (DOSE ADJUSTMENT)
  6. INTERLEUKIN-2 [Suspect]
     Active Substance: ALDESLEUKIN
     Indication: METASTASES TO THE MEDIASTINUM
     Dosage: UNK (DOSE ADJUSTMENT)
     Dates: start: 2009
  7. INF [Concomitant]
     Active Substance: INTERFERON ALFA-2B
     Dosage: UNK
  8. VINBLASTINE [Suspect]
     Active Substance: VINBLASTINE
     Indication: METASTASES TO LUNG
     Dosage: UNK (DOSE ADJUSTMENT)
  9. VINBLASTINE [Suspect]
     Active Substance: VINBLASTINE
     Indication: METASTASES TO THE MEDIASTINUM
  10. DACARBAZINE. [Suspect]
     Active Substance: DACARBAZINE
     Indication: METASTASES TO THE MEDIASTINUM
  11. INTERLEUKIN-2 [Suspect]
     Active Substance: ALDESLEUKIN
     Indication: PROSTATE CANCER
     Dosage: UNK UNK, CYCLIC (9X10^6 UNITS/M^2 X4 DOSES)
  12. CISPLATIN. [Suspect]
     Active Substance: CISPLATIN
     Indication: PROSTATE CANCER
     Dosage: 20 MG/M2, CYCLIC (20 MG/M2 X 4 DOSES)
     Dates: start: 2009

REACTIONS (2)
  - Capillary leak syndrome [Recovered/Resolved]
  - Renal impairment [Recovered/Resolved]
